FAERS Safety Report 13726846 (Version 1)
Quarter: 2017Q3

REPORT INFORMATION
  Report Type: Spontaneous
  Country: US (occurrence: US)
  Receive Date: 20170706
  Receipt Date: 20170706
  Transmission Date: 20171127
  Serious: No
  Sender: FDA-Public Use
  Company Number: US-PFIZER INC-2017291117

PATIENT
  Sex: Male

DRUGS (2)
  1. SULFASALAZINE. [Suspect]
     Active Substance: SULFASALAZINE
     Dosage: UNK
  2. XELJANZ XR [Suspect]
     Active Substance: TOFACITINIB CITRATE
     Dosage: 11 MG, UNK

REACTIONS (13)
  - Blood glucose increased [Unknown]
  - Synovitis [Unknown]
  - Musculoskeletal stiffness [Recovering/Resolving]
  - Trigger finger [Unknown]
  - Swelling [Unknown]
  - Muscle tone disorder [Unknown]
  - Pain [Unknown]
  - Joint range of motion decreased [Unknown]
  - Oedema [Unknown]
  - Balance disorder [Unknown]
  - Joint hyperextension [Unknown]
  - Muscle spasms [Unknown]
  - Blood pressure increased [Unknown]
